FAERS Safety Report 10750281 (Version 2)
Quarter: 2015Q2

REPORT INFORMATION
  Report Type: Report from Study
  Country: IN (occurrence: IN)
  Receive Date: 20150129
  Receipt Date: 20150403
  Transmission Date: 20150821
  Serious: Yes (Death, Hospitalization)
  Sender: FDA-Public Use
  Company Number: IN-ELI_LILLY_AND_COMPANY-IN201501008366

PATIENT
  Age: 54 Year
  Sex: Female

DRUGS (7)
  1. FOLIC ACID. [Concomitant]
     Active Substance: FOLIC ACID
     Indication: PREMEDICATION
     Route: 065
  2. VITAMIN B12 [Concomitant]
     Active Substance: CYANOCOBALAMIN
     Indication: PREMEDICATION
     Route: 065
  3. APRECAP [Concomitant]
     Dosage: UNK, UNKNOWN
     Route: 065
  4. DOMPERIDONE [Concomitant]
     Active Substance: DOMPERIDONE
     Dosage: UNK, UNKNOWN
     Route: 065
  5. EMESET [Concomitant]
     Dosage: UNK, UNKNOWN
     Route: 065
  6. CARBOPLATIN. [Concomitant]
     Active Substance: CARBOPLATIN
     Dosage: UNK, UNKNOWN
     Route: 065
  7. PEMETREXED [Suspect]
     Active Substance: PEMETREXED
     Indication: LUNG NEOPLASM MALIGNANT
     Dosage: 700 MG,
     Route: 042
     Dates: start: 20141020

REACTIONS (7)
  - White blood cell count increased [Unknown]
  - Blood pressure decreased [Fatal]
  - Weight decreased [Unknown]
  - Lung infection [Unknown]
  - Cardiac failure [Fatal]
  - Decreased appetite [Unknown]
  - Pleural effusion [Unknown]

NARRATIVE: CASE EVENT DATE: 201411
